FAERS Safety Report 14768419 (Version 2)
Quarter: 2019Q1

REPORT INFORMATION
  Report Type: Spontaneous
  Country: US (occurrence: US)
  Receive Date: 20180417
  Receipt Date: 20190305
  Transmission Date: 20190417
  Serious: Yes (Other)
  Sender: FDA-Public Use
  Company Number: US-ASTRAZENECA-2018SE49073

PATIENT
  Sex: Male
  Weight: 116.1 kg

DRUGS (25)
  1. ATORVASTATIN CALCIUM. [Concomitant]
     Active Substance: ATORVASTATIN CALCIUM
  2. ATORVASTATIN [Concomitant]
     Active Substance: ATORVASTATIN
  3. PREVACID [Suspect]
     Active Substance: LANSOPRAZOLE
     Route: 065
     Dates: start: 198909, end: 201707
  4. LISINOPRIL. [Concomitant]
     Active Substance: LISINOPRIL
  5. MONTELUKAST [Concomitant]
     Active Substance: MONTELUKAST SODIUM
  6. NAPROXEN. [Concomitant]
     Active Substance: NAPROXEN
  7. MELOXICAM. [Concomitant]
     Active Substance: MELOXICAM
  8. PRILOSEC OTC [Suspect]
     Active Substance: OMEPRAZOLE MAGNESIUM
     Route: 048
     Dates: start: 198909, end: 201707
  9. PROTONIX [Suspect]
     Active Substance: PANTOPRAZOLE SODIUM
     Route: 065
     Dates: start: 198909, end: 201707
  10. ZOLPIDEM [Concomitant]
     Active Substance: ZOLPIDEM\ZOLPIDEM TARTRATE
  11. CYCLOBENZAPRINE. [Concomitant]
     Active Substance: CYCLOBENZAPRINE
  12. AMLODIPINE [Concomitant]
     Active Substance: AMLODIPINE BESYLATE
  13. NEXIUM 24HR [Suspect]
     Active Substance: ESOMEPRAZOLE MAGNESIUM
     Route: 048
     Dates: start: 198909, end: 201707
  14. LATANOPROST. [Concomitant]
     Active Substance: LATANOPROST
  15. METOPROLOL. [Concomitant]
     Active Substance: METOPROLOL
  16. CLINDAMYCIN. [Concomitant]
     Active Substance: CLINDAMYCIN
  17. CELEBREX [Concomitant]
     Active Substance: CELECOXIB
  18. HYDROCHLROTHIAZIDE [Concomitant]
  19. PREDNISOLONE. [Concomitant]
     Active Substance: PREDNISOLONE
  20. PAXIL [Concomitant]
     Active Substance: PAROXETINE HYDROCHLORIDE
  21. NEXIUM [Suspect]
     Active Substance: ESOMEPRAZOLE MAGNESIUM
     Route: 048
     Dates: start: 198909, end: 201707
  22. PRILOSEC [Suspect]
     Active Substance: OMEPRAZOLE MAGNESIUM
     Route: 048
     Dates: start: 198909, end: 201707
  23. PRILOSEC [Suspect]
     Active Substance: OMEPRAZOLE MAGNESIUM
     Route: 048
     Dates: start: 20060101, end: 20161231
  24. DEXILANT [Suspect]
     Active Substance: DEXLANSOPRAZOLE
     Route: 065
     Dates: start: 198909, end: 201707
  25. FUROSEMIDE. [Concomitant]
     Active Substance: FUROSEMIDE

REACTIONS (2)
  - Renal injury [Unknown]
  - Chronic kidney disease [Unknown]
